FAERS Safety Report 4982204-2 (Version None)
Quarter: 2006Q2

REPORT INFORMATION
  Report Type: 
  Country: None (occurrence: None)
  Receive Date: 20060419
  Receipt Date: 20060403
  Transmission Date: 20061013
  Serious: Yes (Other)
  Sender: FDA-Public Use
  Company Number: US200604000523

PATIENT
  Age: 66 Year
  Sex: Female

DRUGS (2)
  1. FORTEO [Suspect]
     Indication: OSTEOPOROSIS
     Dates: start: 20050501
  2. FORTEO PEN (FORTEO PEN) [Concomitant]

REACTIONS (1)
  - BLOOD PARATHYROID HORMONE INCREASED [None]
